FAERS Safety Report 6672987-8 (Version None)
Quarter: 2010Q2

REPORT INFORMATION
  Report Type: 
  Country: None (occurrence: None)
  Receive Date: 20100408
  Receipt Date: 20100401
  Transmission Date: 20101027
  Serious: Yes (Hospitalization)
  Sender: FDA-Public Use
  Company Number: B0631322A

PATIENT
  Sex: Female

DRUGS (5)
  1. LAMICTAL CD [Suspect]
     Indication: EPILEPSY
     Dosage: 25MG TWICE PER DAY
     Route: 048
     Dates: start: 20100119, end: 20100130
  2. DEPAKENE [Suspect]
     Indication: EPILEPSY
     Route: 048
  3. DEPROMEL [Concomitant]
     Indication: EPILEPSY
     Route: 048
  4. SYNPHASE [Concomitant]
     Route: 048
  5. LOXONIN [Concomitant]
     Indication: HEADACHE
     Route: 065

REACTIONS (11)
  - ARTHRALGIA [None]
  - DRUG ERUPTION [None]
  - FLUSHING [None]
  - GENERALISED ERYTHEMA [None]
  - HEPATIC ENZYME INCREASED [None]
  - LIVER DISORDER [None]
  - NASOPHARYNGITIS [None]
  - OCULAR HYPERAEMIA [None]
  - PYREXIA [None]
  - TOXIC SKIN ERUPTION [None]
  - VIRAL INFECTION [None]
